FAERS Safety Report 13129769 (Version 3)
Quarter: 2017Q2

REPORT INFORMATION
  Report Type: Spontaneous
  Country: US (occurrence: US)
  Receive Date: 20170119
  Receipt Date: 20170531
  Transmission Date: 20170830
  Serious: Yes (Hospitalization)
  Sender: FDA-Public Use
  Company Number: US-PFIZER INC-2017021664

PATIENT
  Age: 48 Year
  Sex: Male
  Weight: 98 kg

DRUGS (5)
  1. LYRICA [Suspect]
     Active Substance: PREGABALIN
     Indication: NEUROPATHY PERIPHERAL
     Dosage: 150 MG, DAILY (75 MG, TWO CAPSULES PER DAY)
     Route: 048
     Dates: start: 20170102
  2. VASOTEC [Concomitant]
     Active Substance: ENALAPRIL MALEATE
     Indication: HYPERTENSION
     Dosage: 20 MG, UNK
     Dates: start: 2007
  3. CHLORTHALIDONE. [Concomitant]
     Active Substance: CHLORTHALIDONE
     Indication: HYPERTENSION
     Dosage: 25 MG, 1X/DAY
     Dates: start: 2014
  4. LYRICA [Suspect]
     Active Substance: PREGABALIN
     Indication: PAIN IN EXTREMITY
     Dosage: 75 MG, 1X/DAY (ON OCCASION HE WOULD ONLY TOOK THE MORNING CAPSULE)
     Route: 048
  5. LYRICA [Suspect]
     Active Substance: PREGABALIN
     Dosage: 75 MG, 3X/DAY
     Dates: start: 20170215

REACTIONS (6)
  - Libido increased [Unknown]
  - Pain in extremity [Not Recovered/Not Resolved]
  - Erectile dysfunction [Unknown]
  - Condition aggravated [Not Recovered/Not Resolved]
  - Expired product administered [Unknown]
  - Intentional product misuse [Recovered/Resolved]
